FAERS Safety Report 13035622 (Version 1)
Quarter: 2016Q4

REPORT INFORMATION
  Report Type: Spontaneous
  Country: FR (occurrence: FR)
  Receive Date: 20161216
  Receipt Date: 20161216
  Transmission Date: 20170207
  Serious: Yes (Disabling)
  Sender: FDA-Public Use
  Company Number: FR-ABBVIE-16P-056-1744700-00

PATIENT
  Age: 0 Day
  Sex: Female

DRUGS (1)
  1. DEPAKINE CHRONO [Suspect]
     Active Substance: VALPROATE SODIUM
     Indication: MATERNAL EXPOSURE TIMING UNSPECIFIED
     Route: 064

REACTIONS (11)
  - Joint laxity [Unknown]
  - Foetal exposure during pregnancy [Unknown]
  - Speech disorder [Unknown]
  - Disturbance in attention [Unknown]
  - Scoliosis [Unknown]
  - Learning disorder [Unknown]
  - Psychomotor retardation [Not Recovered/Not Resolved]
  - Congenital cystic kidney disease [Unknown]
  - Hypotonia [Unknown]
  - Visual impairment [Not Recovered/Not Resolved]
  - Paralysis [Unknown]

NARRATIVE: CASE EVENT DATE: 1997
